FAERS Safety Report 17456752 (Version 1)
Quarter: 2020Q1

REPORT INFORMATION
  Report Type: Report from Study
  Country: US (occurrence: US)
  Receive Date: 20200225
  Receipt Date: 20200225
  Transmission Date: 20200409
  Serious: Yes (Hospitalization)
  Sender: FDA-Public Use
  Company Number: US-BRISTOL-MYERS SQUIBB COMPANY-BMS-2020-002711

PATIENT
  Age: 68 Year
  Sex: Male
  Weight: 80.6 kg

DRUGS (3)
  1. NIVOLUMAB [Suspect]
     Active Substance: NIVOLUMAB
     Indication: OESOPHAGEAL ADENOCARCINOMA
     Dosage: 240 MG ON DAYS 1 AND 15
     Route: 042
     Dates: start: 20191203
  2. PACLITAXEL. [Suspect]
     Active Substance: PACLITAXEL
     Indication: OESOPHAGEAL ADENOCARCINOMA
     Dosage: 50 MG/M2 ON DAYS 1, 8, 15, 22, AND 29
     Route: 042
     Dates: start: 20191203
  3. CARBOPLATIN. [Suspect]
     Active Substance: CARBOPLATIN
     Indication: OESOPHAGEAL ADENOCARCINOMA
     Dosage: AUC 2 ON DAYS 1, 8, 15, 22, AND 29
     Route: 042
     Dates: start: 20191203

REACTIONS (2)
  - Dehydration [Unknown]
  - Hypotension [Recovering/Resolving]

NARRATIVE: CASE EVENT DATE: 20191211
